FAERS Safety Report 8574909-1 (Version None)
Quarter: 2012Q3

REPORT INFORMATION
  Report Type: 
  Country: None (occurrence: None)
  Receive Date: 20120807
  Receipt Date: 20120727
  Transmission Date: 20120928
  Serious: Yes (Hospitalization)
  Sender: FDA-Public Use
  Company Number: JP-VERTEX PHARMACEUTICALS INC.-AE-2012-011316

PATIENT
  Age: 69 Year
  Sex: Male

DRUGS (8)
  1. URALYT [Concomitant]
     Route: 048
     Dates: start: 20120317
  2. TELAVIC [Suspect]
     Indication: HEPATITIS C
     Route: 048
     Dates: start: 20120313, end: 20120316
  3. REBETOL [Concomitant]
     Route: 048
     Dates: start: 20120313, end: 20120411
  4. TELAVIC [Suspect]
     Route: 048
     Dates: start: 20120317, end: 20120629
  5. PEG-INTRON [Concomitant]
     Indication: HEPATITIS C
     Route: 058
     Dates: start: 20120313
  6. LOXONIN [Concomitant]
     Route: 048
     Dates: start: 20120314
  7. SELBEX [Concomitant]
     Route: 048
     Dates: start: 20120314
  8. URINORM [Concomitant]
     Route: 048
     Dates: start: 20120317

REACTIONS (1)
  - PLEURAL EFFUSION [None]
